FAERS Safety Report 5715799-1 (Version None)
Quarter: 2008Q2

REPORT INFORMATION
  Report Type: 
  Country: None (occurrence: None)
  Receive Date: 20080424
  Receipt Date: 20080421
  Transmission Date: 20081010
  Serious: Yes (Hospitalization)
  Sender: FDA-Public Use
  Company Number: JP-BRISTOL-MYERS SQUIBB COMPANY-14124598

PATIENT
  Age: 57 Year
  Sex: Male

DRUGS (8)
  1. TAXOL [Suspect]
     Indication: GASTRIC CANCER
     Route: 041
     Dates: start: 20080305, end: 20080305
  2. TS-1 [Concomitant]
     Indication: GASTRIC CANCER
  3. DECADRON [Concomitant]
     Route: 042
     Dates: start: 20080305, end: 20080305
  4. ZANTAC [Concomitant]
     Route: 042
     Dates: start: 20080305, end: 20080305
  5. ZOFRAN [Concomitant]
     Route: 042
     Dates: start: 20080305, end: 20080305
  6. VENA [Concomitant]
     Route: 048
     Dates: start: 20080305, end: 20080305
  7. NORVASC [Concomitant]
     Route: 048
     Dates: start: 20080307, end: 20080312
  8. SENNOSIDE [Concomitant]
     Route: 048
     Dates: start: 20080305, end: 20080312

REACTIONS (1)
  - RENAL FAILURE ACUTE [None]
